FAERS Safety Report 19901851 (Version 2)
Quarter: 2021Q4

REPORT INFORMATION
  Report Type: Spontaneous
  Country: US (occurrence: US)
  Receive Date: 20210930
  Receipt Date: 20211231
  Transmission Date: 20220304
  Serious: Yes (Death, Other)
  Sender: FDA-Public Use
  Company Number: US-BRISTOL-MYERS SQUIBB COMPANY-BMS-2021-099290

PATIENT
  Age: 70 Year
  Sex: Male

DRUGS (2)
  1. OPDIVO [Suspect]
     Active Substance: NIVOLUMAB
     Indication: Small cell lung cancer
     Dosage: 240 MILLIGRAM, Q3WK
     Route: 042
     Dates: start: 20210708
  2. YERVOY [Suspect]
     Active Substance: IPILIMUMAB
     Indication: Small cell lung cancer
     Dosage: 96 MILLIGRAM, Q3WK
     Route: 042
     Dates: start: 20210708

REACTIONS (2)
  - Death [Fatal]
  - Intentional product use issue [Unknown]

NARRATIVE: CASE EVENT DATE: 20210915
